FAERS Safety Report 13727305 (Version 1)
Quarter: 2017Q3

REPORT INFORMATION
  Report Type: Spontaneous
  Country: FR (occurrence: FR)
  Receive Date: 20170707
  Receipt Date: 20170707
  Transmission Date: 20171127
  Serious: Yes (Hospitalization)
  Sender: FDA-Public Use
  Company Number: FR-INDIVIOR LIMITED-INDV-103055-2017

PATIENT
  Sex: Male

DRUGS (1)
  1. SUBUTEX [Suspect]
     Active Substance: BUPRENORPHINE HYDROCHLORIDE
     Indication: PRODUCT USED FOR UNKNOWN INDICATION
     Dosage: UNK
     Route: 042

REACTIONS (10)
  - Tachycardia [Unknown]
  - Intentional product use issue [Unknown]
  - Chest pain [Unknown]
  - Cellulitis [Unknown]
  - Neck pain [Unknown]
  - Drug dependence [Unknown]
  - Body temperature increased [Unknown]
  - Abscess neck [Unknown]
  - Dysphagia [Recovered/Resolved]
  - Headache [Unknown]
